FAERS Safety Report 18819497 (Version 2)
Quarter: 2021Q1

REPORT INFORMATION
  Report Type: Spontaneous
  Country: CN (occurrence: CN)
  Receive Date: 20210201
  Receipt Date: 20210211
  Transmission Date: 20210419
  Serious: Yes (Life-Threatening, Other)
  Sender: FDA-Public Use
  Company Number: CN-BAYER-2021-048231

PATIENT
  Age: 28 Year
  Sex: Male
  Weight: 63 kg

DRUGS (3)
  1. HARNAL [Suspect]
     Active Substance: TAMSULOSIN HYDROCHLORIDE
     Indication: NEPHROLITHIASIS
     Dosage: 1 DF, QD
     Route: 048
     Dates: start: 20201019, end: 20201019
  2. AVELOX [Suspect]
     Active Substance: MOXIFLOXACIN HYDROCHLORIDE
     Indication: NEPHROLITHIASIS
     Dosage: 1 DF, QD
     Route: 048
     Dates: start: 20201019, end: 20201019
  3. CELECOXIB. [Suspect]
     Active Substance: CELECOXIB
     Indication: NEPHROLITHIASIS
     Dosage: 1 DF, QD
     Route: 048
     Dates: start: 20201019, end: 20201019

REACTIONS (5)
  - Product use in unapproved indication [None]
  - Rash rubelliform [Recovering/Resolving]
  - Rash papular [Recovering/Resolving]
  - Off label use [None]
  - Anaphylactic shock [None]

NARRATIVE: CASE EVENT DATE: 20201019
